FAERS Safety Report 22355594 (Version 4)
Quarter: 2023Q4

REPORT INFORMATION
  Report Type: Spontaneous
  Country: US (occurrence: US)
  Receive Date: 20230523
  Receipt Date: 20231011
  Transmission Date: 20240110
  Serious: No
  Sender: FDA-Public Use
  Company Number: US-BRISTOL-MYERS SQUIBB COMPANY-2023-072286

PATIENT
  Age: 62 Year
  Sex: Male

DRUGS (2)
  1. REVLIMID [Suspect]
     Active Substance: LENALIDOMIDE
     Indication: Physical examination
     Dosage: FREQUENCY: PRN (AS NEEDED).
     Route: 048
  2. REVLIMID [Suspect]
     Active Substance: LENALIDOMIDE
     Route: 048
     Dates: start: 20220124

REACTIONS (7)
  - Diarrhoea [Unknown]
  - Diarrhoea [Unknown]
  - Fatigue [Unknown]
  - Full blood count abnormal [Recovered/Resolved]
  - Infection [Recovered/Resolved]
  - Tooth disorder [Recovered/Resolved]
  - Memory impairment [Unknown]

NARRATIVE: CASE EVENT DATE: 20230502
